FAERS Safety Report 21427105 (Version 1)
Quarter: 2022Q4

REPORT INFORMATION
  Report Type: Spontaneous
  Country: US (occurrence: US)
  Receive Date: 20221008
  Receipt Date: 20221008
  Transmission Date: 20230113
  Serious: Yes (Other)
  Sender: FDA-Public Use
  Company Number: US-PURDUE-USA-2020-0203766

PATIENT
  Sex: Male

DRUGS (4)
  1. HYDROCODONE BITARTRATE AND ACETAMINOPHEN [Suspect]
     Active Substance: ACETAMINOPHEN\HYDROCODONE BITARTRATE
     Indication: Joint injury
     Dosage: UNK
     Route: 065
  2. HYDROCODONE BITARTRATE AND ACETAMINOPHEN [Suspect]
     Active Substance: ACETAMINOPHEN\HYDROCODONE BITARTRATE
     Indication: Pain
  3. HYDROCODONE [Suspect]
     Active Substance: HYDROCODONE
     Indication: Joint injury
     Dosage: UNK
     Route: 065
     Dates: start: 2010
  4. HYDROCODONE [Suspect]
     Active Substance: HYDROCODONE
     Indication: Pain

REACTIONS (4)
  - Drug dependence [Unknown]
  - Confusional state [Unknown]
  - Amnesia [Unknown]
  - Impulse-control disorder [Unknown]
